FAERS Safety Report 7074854-7 (Version None)
Quarter: 2010Q4

REPORT INFORMATION
  Report Type: 
  Country: None (occurrence: None)
  Receive Date: 20101029
  Receipt Date: 20101022
  Transmission Date: 20110411
  Serious: Yes (Other)
  Sender: FDA-Public Use
  Company Number: US-GENENTECH-295230

PATIENT
  Sex: Female
  Weight: 99.773 kg

DRUGS (19)
  1. XOLAIR [Suspect]
     Indication: ASTHMA
     Dosage: 300 MG, 1/MONTH
     Route: 058
     Dates: start: 20090414, end: 20091123
  2. SYMBICORT [Concomitant]
     Indication: ASTHMA
     Dosage: 2 PUFF, BID
     Dates: start: 20090101
  3. PULMICORT [Concomitant]
     Indication: ASTHMA
     Dosage: 1 PUFF, BID
     Dates: start: 20090101
  4. PRILOSEC [Concomitant]
     Indication: GASTROOESOPHAGEAL REFLUX DISEASE
     Dosage: UNK
     Route: 048
  5. YAZ [Concomitant]
     Dosage: UNK
  6. CONCOMITANT DRUG [Concomitant]
  7. TOPROL-XL [Concomitant]
     Dosage: 50 MG, UNK
  8. TOPROL-XL [Concomitant]
     Dosage: 25 MG, PRN
  9. ZYRTEC [Concomitant]
     Indication: HYPERSENSITIVITY
     Dosage: 10 MG, UNK
  10. AMOXICILLIN AND CLAVULANATE POTASSIUM [Concomitant]
     Indication: SINUSITIS
     Dosage: UNK
     Route: 048
     Dates: start: 20100409, end: 20100419
  11. MIDODRINE HYDROCHLORIDE [Concomitant]
     Indication: HYPOTENSION
     Dosage: 2.5 MG, BID
     Route: 048
     Dates: start: 20080101
  12. REGLAN [Concomitant]
     Indication: GASTROINTESTINAL DISORDER
     Dosage: 10 MG, QD
     Route: 048
     Dates: start: 20080101
  13. XYZAL [Concomitant]
     Indication: SINUS DISORDER
     Dosage: 5 MG, QD
     Route: 048
     Dates: start: 20100201
  14. TUSSIONEX (UNITED STATES) [Concomitant]
     Indication: COUGH
     Dosage: 1 ML, PRN
     Route: 048
     Dates: start: 20100409
  15. ALBUTEROL SULFATE [Concomitant]
     Indication: ASTHMA
     Dosage: 2.5 MG, PRN
     Route: 048
     Dates: start: 20080101
  16. ALBUTEROL [Concomitant]
     Indication: ASTHMA
     Dosage: 2 PUFF, PRN
     Dates: start: 20020101
  17. METOPROLOL [Concomitant]
     Indication: HEART RATE INCREASED
     Dosage: 25 MG, QD
     Route: 048
     Dates: start: 20080101
  18. BEPREVE [Concomitant]
     Indication: EYE PRURITUS
     Dosage: 2 GTT, PRN
     Dates: start: 20100201
  19. PREDNISONE [Concomitant]
     Indication: UPPER RESPIRATORY TRACT INFECTION
     Dosage: 10 MG, UNK
     Route: 048
     Dates: start: 20100409

REACTIONS (5)
  - ASTHMA [None]
  - HYPOAESTHESIA ORAL [None]
  - PHARYNGEAL OEDEMA [None]
  - URTICARIA [None]
  - WHEEZING [None]
